FAERS Safety Report 23483067 (Version 4)
Quarter: 2024Q1

REPORT INFORMATION
  Report Type: Spontaneous
  Country: US (occurrence: US)
  Receive Date: 20240205
  Receipt Date: 20240315
  Transmission Date: 20240410
  Serious: No
  Sender: FDA-Public Use
  Company Number: US-PFIZER INC-PV202300018241

PATIENT
  Age: 71 Year
  Sex: Female
  Weight: 63.492 kg

DRUGS (7)
  1. CIBINQO [Suspect]
     Active Substance: ABROCITINIB
     Indication: Chronic spontaneous urticaria
     Dosage: 100 MG, 1X/DAY
     Route: 048
     Dates: start: 20220413, end: 2023
  2. CIBINQO [Suspect]
     Active Substance: ABROCITINIB
     Indication: Eczema
     Dosage: 200 MILLIGRAMS ONCE A DAY
     Route: 048
     Dates: start: 2023
  3. CIBINQO [Suspect]
     Active Substance: ABROCITINIB
     Indication: Dermatitis atopic
     Dosage: 100 MG, 2X/DAY
     Route: 048
     Dates: start: 20230525
  4. ALPRAZOLAM [Concomitant]
     Active Substance: ALPRAZOLAM
     Indication: Anxiety
     Dosage: 0.5 MG, 2X/DAY
     Route: 048
  5. ATRALIN [TRETINOIN] [Concomitant]
  6. BENZOYL PEROXIDE [Concomitant]
     Active Substance: BENZOYL PEROXIDE
     Indication: Acne
  7. HYDROCHLOROTHIAZIDE [Concomitant]
     Active Substance: HYDROCHLOROTHIAZIDE
     Indication: Oedema
     Dosage: 50 MG, DAILY

REACTIONS (2)
  - Drug ineffective [Unknown]
  - Product prescribing error [Unknown]
